FAERS Safety Report 9110231 (Version 1)
Quarter: 2013Q1

REPORT INFORMATION
  Report Type: Spontaneous
  Country: US (occurrence: US)
  Receive Date: 20130222
  Receipt Date: 20130222
  Transmission Date: 20140127
  Serious: Yes (Other)
  Sender: FDA-Public Use
  Company Number: US-JNJFOC-20130207609

PATIENT
  Age: 44 Year
  Sex: Male
  Weight: 151.96 kg

DRUGS (17)
  1. REMICADE [Suspect]
     Indication: PSORIASIS
     Route: 042
     Dates: start: 2008
  2. REMICADE [Suspect]
     Indication: PSORIASIS
     Dosage: THERAPY DURATION: 4 YEARS
     Route: 042
     Dates: end: 20120428
  3. REMICADE [Suspect]
     Indication: PSORIATIC ARTHROPATHY
     Route: 042
     Dates: start: 2008
  4. REMICADE [Suspect]
     Indication: PSORIATIC ARTHROPATHY
     Dosage: THERAPY DURATION: 4 YEARS
     Route: 042
     Dates: end: 20120428
  5. HUMIRA [Suspect]
     Indication: PSORIASIS
     Route: 058
     Dates: start: 20120710, end: 20130117
  6. HUMIRA [Suspect]
     Indication: PSORIASIS
     Route: 058
     Dates: start: 20120515, end: 20120703
  7. HUMIRA [Suspect]
     Indication: PSORIATIC ARTHROPATHY
     Route: 058
     Dates: start: 20120710, end: 20130117
  8. HUMIRA [Suspect]
     Indication: PSORIATIC ARTHROPATHY
     Route: 058
     Dates: start: 20120515, end: 20120703
  9. ENBREL [Suspect]
     Indication: PSORIASIS
     Dosage: THERAPY DURATION: 4 YEARS
     Route: 065
     Dates: start: 2004, end: 2008
  10. RAPTIVA [Suspect]
     Indication: PSORIASIS
     Dosage: THERAPY DURATION: 2 YEARS
     Route: 065
     Dates: start: 2002, end: 2004
  11. MONTELUKAST SODIUM [Concomitant]
     Indication: ASTHMA
     Route: 065
  12. PREVACID [Concomitant]
     Indication: GASTROOESOPHAGEAL REFLUX DISEASE
     Route: 065
  13. WELLBUTRIN [Concomitant]
     Indication: DEPRESSION
     Route: 065
  14. ZOLOFT [Concomitant]
     Indication: ANXIETY
     Route: 065
  15. KLONOPIN [Concomitant]
     Indication: IRRITABILITY
     Route: 065
  16. UNKNOWN MEDICATION [Concomitant]
     Indication: HYPERTENSION
     Route: 065
  17. INHALER NOS [Concomitant]
     Indication: ASTHMA
     Route: 065

REACTIONS (6)
  - Skin lesion [Unknown]
  - Skin haemorrhage [Unknown]
  - Primary amyloidosis [Unknown]
  - Psoriatic arthropathy [Unknown]
  - Pruritus [Unknown]
  - Pain of skin [Unknown]
